FAERS Safety Report 12086726 (Version 2)
Quarter: 2016Q1

REPORT INFORMATION
  Report Type: Spontaneous
  Country: US (occurrence: US)
  Receive Date: 20160217
  Receipt Date: 20160217
  Transmission Date: 20160526
  Serious: No
  Sender: FDA-Public Use
  Company Number: US-ALLERGAN-1501672US

PATIENT
  Age: 65 Year
  Sex: Female

DRUGS (3)
  1. ARMOUR THYROID [Concomitant]
     Active Substance: THYROID, PORCINE
     Indication: THYROID DISORDER
     Dosage: UNK
     Route: 048
  2. RESTASIS [Suspect]
     Active Substance: CYCLOSPORINE
     Indication: DRY EYE
     Dosage: 2 GTT, TID
     Route: 047
  3. REFRESH CELLUVISC [Suspect]
     Active Substance: CARBOXYMETHYLCELLULOSE SODIUM
     Indication: DRY EYE
     Dosage: 2 GTT, TID AS NEEDED
     Route: 047
     Dates: start: 20141208, end: 20150129

REACTIONS (8)
  - Cataract [Unknown]
  - Drug hypersensitivity [Unknown]
  - Foreign body sensation in eyes [Unknown]
  - Punctate keratitis [Recovered/Resolved]
  - Impaired healing [Unknown]
  - Inappropriate schedule of drug administration [Unknown]
  - Corneal oedema [Unknown]
  - Vision blurred [Unknown]

NARRATIVE: CASE EVENT DATE: 20141222
